FAERS Safety Report 4385003-8 (Version None)
Quarter: 2004Q2

REPORT INFORMATION
  Report Type: 
  Country: None (occurrence: None)
  Receive Date: 20040607
  Receipt Date: 20030415
  Transmission Date: 20050107
  Serious: Yes (Other)
  Sender: FDA-Public Use
  Company Number: 336268

PATIENT
  Sex: Male

DRUGS (1)
  1. ACCUTANE [Suspect]
     Dosage: ORAL
     Route: 048
     Dates: start: 19990615

REACTIONS (6)
  - BENIGN INTRACRANIAL HYPERTENSION [None]
  - DEPRESSION [None]
  - LEARNING DISORDER [None]
  - LETHARGY [None]
  - MEMORY IMPAIRMENT [None]
  - PANIC ATTACK [None]
